FAERS Safety Report 12798665 (Version 2)
Quarter: 2016Q4

REPORT INFORMATION
  Report Type: Report from Study
  Country: US (occurrence: US)
  Receive Date: 20160930
  Receipt Date: 20161027
  Transmission Date: 20170207
  Serious: No
  Sender: FDA-Public Use
  Company Number: PHEH2016US024790

PATIENT
  Sex: Male

DRUGS (1)
  1. COSENTYX [Suspect]
     Active Substance: SECUKINUMAB
     Indication: PSORIATIC ARTHROPATHY
     Dosage: 150 MG, QW
     Route: 058
     Dates: start: 20160921

REACTIONS (9)
  - Pain in extremity [Unknown]
  - Vomiting [Unknown]
  - Heart rate abnormal [Unknown]
  - Diarrhoea [Unknown]
  - Gait disturbance [Unknown]
  - Dizziness [Unknown]
  - Gout [Unknown]
  - Feeling abnormal [Unknown]
  - Pyrexia [Unknown]
